FAERS Safety Report 6413785-X (Version None)
Quarter: 2009Q4

REPORT INFORMATION
  Report Type: 
  Country: None (occurrence: None)
  Receive Date: 20091026
  Receipt Date: 20091020
  Transmission Date: 20100525
  Serious: Yes (Disabling, Other)
  Sender: FDA-Public Use
  Company Number: CA-BAYER-200931667NA

PATIENT
  Age: 64 Year
  Sex: Female
  Weight: 69 kg

DRUGS (4)
  1. AVELOX [Suspect]
     Indication: DIVERTICULITIS
     Dosage: TOTAL DAILY DOSE: 400 MG  UNIT DOSE: 400 MG
     Route: 048
     Dates: start: 20090308, end: 20090312
  2. MULTI-VITAMIN [Concomitant]
  3. CALCIUM [Concomitant]
  4. MAGNESIUM [Concomitant]

REACTIONS (14)
  - AGITATION [None]
  - ANXIETY [None]
  - COMMUNICATION DISORDER [None]
  - DEPRESSED MOOD [None]
  - DISSOCIATION [None]
  - FEAR [None]
  - FEELING ABNORMAL [None]
  - HEADACHE [None]
  - HYPERTENSION [None]
  - INITIAL INSOMNIA [None]
  - IRRITABILITY [None]
  - LACK OF SPONTANEOUS SPEECH [None]
  - NERVOUS SYSTEM DISORDER [None]
  - SINUS CONGESTION [None]
